FAERS Safety Report 25143198 (Version 1)
Quarter: 2025Q2

REPORT INFORMATION
  Report Type: Spontaneous
  Country: US (occurrence: US)
  Receive Date: 20250401
  Receipt Date: 20250401
  Transmission Date: 20250717
  Serious: Yes (Hospitalization, Other)
  Sender: MARKSANS
  Company Number: US-MARKSANS PHARMA LIMITED-MPL202500028

PATIENT

DRUGS (1)
  1. METFORMIN HYDROCHLORIDE [Suspect]
     Active Substance: METFORMIN HYDROCHLORIDE
     Indication: Product used for unknown indication
     Route: 048

REACTIONS (4)
  - Intentional self-injury [Unknown]
  - Hypothermia [Unknown]
  - Hypoglycaemia [Recovered/Resolved]
  - Overdose [Unknown]
